FAERS Safety Report 8209509-6 (Version None)
Quarter: 2012Q1

REPORT INFORMATION
  Report Type: 
  Country: None (occurrence: None)
  Receive Date: 20120314
  Receipt Date: 20120307
  Transmission Date: 20120608
  Serious: Yes (Hospitalization)
  Sender: FDA-Public Use
  Company Number: ES-ELI_LILLY_AND_COMPANY-ES201203002567

PATIENT

DRUGS (1)
  1. HUMALOG [Suspect]
     Route: 058

REACTIONS (2)
  - HOSPITALISATION [None]
  - BLOOD GLUCOSE ABNORMAL [None]
